FAERS Safety Report 7730914-6 (Version None)
Quarter: 2011Q3

REPORT INFORMATION
  Report Type: 
  Country: None (occurrence: None)
  Receive Date: 20110906
  Receipt Date: 20110824
  Transmission Date: 20111222
  Serious: Yes (Hospitalization)
  Sender: FDA-Public Use
  Company Number: JP-PFIZER INC-2011190952

PATIENT
  Age: 71 Year
  Sex: Female
  Weight: 55.5 kg

DRUGS (11)
  1. ARICEPT [Concomitant]
     Dosage: UNK
     Route: 048
     Dates: end: 20110609
  2. RABEPRAZOLE SODIUM [Concomitant]
     Dosage: UNK
     Route: 048
     Dates: end: 20110609
  3. ACTONEL [Concomitant]
     Dosage: UNK
     Route: 048
     Dates: end: 20110509
  4. FERROUS CITRATE [Concomitant]
     Dosage: UNK
     Route: 048
     Dates: end: 20110609
  5. PREDNISOLONE [Concomitant]
     Dosage: UNK
     Route: 048
     Dates: end: 20110609
  6. FOLIC ACID [Concomitant]
     Dosage: UNK
     Route: 048
     Dates: end: 20110609
  7. PROGRAF [Concomitant]
     Dosage: UNK
     Dates: end: 20110609
  8. ETODOLAC [Concomitant]
     Dosage: UNK
     Route: 048
     Dates: end: 20110609
  9. ALFAROL [Concomitant]
     Dosage: UNK
     Route: 048
     Dates: end: 20110609
  10. ATORVASTATIN CALCIUM [Suspect]
     Indication: HYPERCHOLESTEROLAEMIA
     Dosage: 10 MG, 1X/DAY
     Route: 048
     Dates: start: 20110112
  11. METHOTREXATE [Concomitant]
     Dosage: UNK
     Route: 048
     Dates: end: 20110609

REACTIONS (2)
  - METASTASES TO LUNG [None]
  - LARGE INTESTINE CARCINOMA [None]
